FAERS Safety Report 16934066 (Version 2)
Quarter: 2019Q4

REPORT INFORMATION
  Report Type: Spontaneous
  Country: IT (occurrence: IT)
  Receive Date: 20191018
  Receipt Date: 20191030
  Transmission Date: 20200122
  Serious: Yes (Other)
  Sender: FDA-Public Use
  Company Number: IT-HIKMA PHARMACEUTICALS USA INC.-IT-H14001-19-49382

PATIENT
  Age: 66 Year
  Sex: Female
  Weight: 65 kg

DRUGS (4)
  1. CYCLOPHOSPHAMIDE. [Suspect]
     Active Substance: CYCLOPHOSPHAMIDE
     Indication: LYMPHOPLASMACYTOID LYMPHOMA/IMMUNOCYTOMA
     Dosage: CHOP, ESCALATED DURING 5 DAYS AND CYCLES REPEATED ABOUT EVERY 28 DAYS (NOT 21), BECAUSE OF POOR COMP
     Route: 042
     Dates: start: 2017, end: 201802
  2. DOXORUBICIN [Suspect]
     Active Substance: DOXORUBICIN
     Indication: LYMPHOPLASMACYTOID LYMPHOMA/IMMUNOCYTOMA
     Dosage: CHOP, ESCALATED DURING 5 DAYS AND CYCLES REPEATED ABOUT EVERY 28 DAYS (NOT 21), BECAUSE OF POOR COMP
     Route: 042
     Dates: start: 2017, end: 201802
  3. VINCRISTINE [Suspect]
     Active Substance: VINCRISTINE
     Indication: LYMPHOPLASMACYTOID LYMPHOMA/IMMUNOCYTOMA
     Dosage: CHOP, ESCALATED DURING 5 DAYS AND CYCLES REPEATED ABOUT EVERY 28 DAYS (NOT 21), BECAUSE OF POOR COMP
     Route: 042
     Dates: start: 2017, end: 201802
  4. PREDNISONE. [Suspect]
     Active Substance: PREDNISONE
     Indication: LYMPHOPLASMACYTOID LYMPHOMA/IMMUNOCYTOMA
     Dosage: CHOP, ESCALATED DURING 5 DAYS AND CYCLES REPEATED ABOUT EVERY 28 DAYS (NOT 21), BECAUSE OF POOR COMP
     Route: 048
     Dates: start: 2017, end: 201802

REACTIONS (4)
  - Condition aggravated [Recovered/Resolved]
  - Anaemia [Recovered/Resolved]
  - Thrombocytopenia [Recovered/Resolved]
  - Lymphocytosis [Recovered/Resolved]

NARRATIVE: CASE EVENT DATE: 201710
